FAERS Safety Report 12957174 (Version 1)
Quarter: 2016Q4

REPORT INFORMATION
  Report Type: Report from Study
  Country: US (occurrence: US)
  Receive Date: 20161118
  Receipt Date: 20161118
  Transmission Date: 20170207
  Serious: Yes (Other)
  Sender: FDA-Public Use
  Company Number: US-GILEAD-2016-0243115

PATIENT
  Age: 68 Year
  Sex: Male

DRUGS (1)
  1. LEDIPASVIR/SOFOSBUVIR [Suspect]
     Active Substance: LEDIPASVIR\SOFOSBUVIR
     Indication: CHRONIC HEPATITIS C
     Dosage: 1 DF, UNK
     Route: 048
     Dates: start: 201507, end: 201510

REACTIONS (7)
  - Arthralgia [Unknown]
  - Constipation [Not Recovered/Not Resolved]
  - Hepatic cirrhosis [Unknown]
  - Platelet count decreased [Unknown]
  - Asthenia [Unknown]
  - Joint injury [Unknown]
  - Weight increased [Unknown]

NARRATIVE: CASE EVENT DATE: 201610
